FAERS Safety Report 9466362 (Version 1)
Quarter: 2013Q3

REPORT INFORMATION
  Report Type: Spontaneous
  Country: BR (occurrence: BR)
  Receive Date: 20130820
  Receipt Date: 20130820
  Transmission Date: 20140515
  Serious: Yes (Congenital Anomaly)
  Sender: FDA-Public Use
  Company Number: BR-BAYER-2013-097499

PATIENT
  Sex: Male
  Weight: 6 kg

DRUGS (1)
  1. MIRENA [Suspect]
     Route: 064

REACTIONS (3)
  - Exomphalos [None]
  - Local swelling [None]
  - Foetal exposure timing unspecified [None]
